FAERS Safety Report 7878862-5 (Version None)
Quarter: 2011Q4

REPORT INFORMATION
  Report Type: 
  Country: None (occurrence: None)
  Receive Date: 20111024
  Receipt Date: 20110707
  Transmission Date: 20120403
  Serious: Yes (Other)
  Sender: FDA-Public Use
  Company Number: AMAG201100153

PATIENT
  Age: 84 Year
  Sex: Female
  Weight: 58.5 kg

DRUGS (12)
  1. FOLIC ACID [Concomitant]
  2. PEPCID (CALCIUM CARBONATE, FAMOTIDINE, MAGNESIUM HYDROXIDE) [Concomitant]
  3. METOPROLOL TARTRATE [Concomitant]
  4. METFORMIN HCL [Concomitant]
  5. LIPITOR [Concomitant]
  6. DIGOXIN [Concomitant]
  7. ATENOLOL [Concomitant]
  8. AMARYL [Concomitant]
  9. FERAHEME [Suspect]
     Indication: IRON DEFICIENCY ANAEMIA
     Dosage: 510 MG, SINGLE, INTRAVENOUS
     Route: 042
     Dates: start: 20110706, end: 20110706
  10. ASPIRIN [Concomitant]
  11. IRON [Concomitant]
  12. FUROSEMIDE (FUROSEMIDE SODIUM) [Concomitant]

REACTIONS (13)
  - CHEST PAIN [None]
  - ANAPHYLACTIC REACTION [None]
  - OXYGEN SATURATION DECREASED [None]
  - HYPERHIDROSIS [None]
  - NAUSEA [None]
  - RESTLESSNESS [None]
  - DIZZINESS [None]
  - CHEST DISCOMFORT [None]
  - ABDOMINAL PAIN [None]
  - HYPOTENSION [None]
  - SYNCOPE [None]
  - BUNDLE BRANCH BLOCK LEFT [None]
  - HEADACHE [None]
